FAERS Safety Report 24358788 (Version 3)
Quarter: 2025Q1

REPORT INFORMATION
  Report Type: Report from Study
  Country: IE (occurrence: IE)
  Receive Date: 20240924
  Receipt Date: 20250214
  Transmission Date: 20250408
  Serious: Yes (Other)
  Sender: PFIZER
  Company Number: IE-PFIZER INC-PV202400123400

PATIENT
  Age: 54 Year
  Sex: Female
  Weight: 54 kg

DRUGS (5)
  1. RITLECITINIB [Suspect]
     Active Substance: RITLECITINIB
     Indication: Alopecia areata
     Dosage: 50 MG, 1X/DAY
     Route: 048
     Dates: start: 20240117
  2. PREDNISOLONE [Concomitant]
     Active Substance: PREDNISOLONE
     Dosage: 7.5 MG, DAILY, SLOWLY WEAN LONG-TERM
  3. LONITEN [Concomitant]
     Active Substance: MINOXIDIL
     Indication: Alopecia areata
     Dosage: 0.625 MG, 1X/DAY
     Route: 048
     Dates: start: 20190801
  4. DELTACORTRIL [Concomitant]
     Active Substance: PREDNISOLONE
     Indication: Alopecia areata
     Dosage: 7.5 MG, 1X/DAY
     Route: 048
     Dates: start: 20190801
  5. CALCIUM\CHOLECALCIFEROL [Concomitant]
     Active Substance: CALCIUM\CHOLECALCIFEROL
     Dosage: 1 TABLET, DAILY

REACTIONS (6)
  - Upper respiratory tract infection [Recovered/Resolved]
  - Haemoglobin increased [Unknown]
  - Neutrophil count abnormal [Unknown]
  - Asthma [Recovered/Resolved]
  - Infection [Recovered/Resolved]
  - Nasopharyngitis [Recovered/Resolved]

NARRATIVE: CASE EVENT DATE: 20241220
